FAERS Safety Report 8023318-2 (Version None)
Quarter: 2012Q1

REPORT INFORMATION
  Report Type: 
  Country: None (occurrence: None)
  Receive Date: 20120104
  Receipt Date: 20111229
  Transmission Date: 20120608
  Serious: Yes (Hospitalization)
  Sender: FDA-Public Use
  Company Number: FR-ROCHE-1026396

PATIENT
  Sex: Male

DRUGS (7)
  1. ESCITALOPRAM OXALATE [Concomitant]
     Dates: start: 20110818
  2. VALIUM [Suspect]
     Indication: ANXIETY
     Route: 048
     Dates: start: 20110728, end: 20110905
  3. ZOLPIDEM [Concomitant]
  4. HALDOL [Suspect]
     Indication: ABNORMAL BEHAVIOUR
     Route: 048
     Dates: start: 20110729, end: 20110903
  5. ASPIRIN [Concomitant]
     Dates: start: 20110708
  6. ATORVASTATIN CALCIUM [Concomitant]
     Dates: start: 20110726
  7. TAMSULOSIN HCL [Concomitant]

REACTIONS (3)
  - FALL [None]
  - SOMNOLENCE [None]
  - DROP ATTACKS [None]
